FAERS Safety Report 4803151-2 (Version None)
Quarter: 2005Q4

REPORT INFORMATION
  Report Type: 
  Country: None (occurrence: None)
  Receive Date: 20051019
  Receipt Date: 20051010
  Transmission Date: 20060501
  Serious: Yes (Disabling)
  Sender: FDA-Public Use
  Company Number: US-MERCK-0510USA06633

PATIENT
  Age: 77 Year
  Sex: Female

DRUGS (2)
  1. VIOXX [Suspect]
     Indication: RHEUMATOID ARTHRITIS
     Route: 048
     Dates: start: 20010501
  2. VIOXX [Suspect]
     Indication: OSTEOARTHRITIS
     Route: 048
     Dates: start: 20010501

REACTIONS (1)
  - CEREBROVASCULAR ACCIDENT [None]
